FAERS Safety Report 8465034-9 (Version None)
Quarter: 2012Q2

REPORT INFORMATION
  Report Type: 
  Country: None (occurrence: None)
  Receive Date: 20120618
  Receipt Date: 20120607
  Transmission Date: 20120825
  Serious: Yes (Hospitalization)
  Sender: FDA-Public Use
  Company Number: DKLU1081944

PATIENT
  Age: 24 Month
  Sex: Female

DRUGS (4)
  1. ZONEGRAN [Concomitant]
  2. SABRIL [Suspect]
     Indication: INFANTILE SPASMS
     Dosage: 500 MG MILLIGRAM(S), AM ORAL, 1000 MG MILLIGRAM(S), AFTERNOON, ORAL, 1000 MG (MILLIGRAM(S), HS, ORAL
     Route: 048
     Dates: start: 20110525
  3. SABRIL [Suspect]
     Indication: INFANTILE SPASMS
     Dosage: 500 MG MILLIGRAM(S), AM ORAL, 1000 MG MILLIGRAM(S), AFTERNOON, ORAL, 1000 MG (MILLIGRAM(S), HS, ORAL
     Route: 048
     Dates: start: 20110525
  4. SABRIL [Suspect]
     Indication: INFANTILE SPASMS
     Dosage: 500 MG MILLIGRAM(S), AM ORAL, 1000 MG MILLIGRAM(S), AFTERNOON, ORAL, 1000 MG (MILLIGRAM(S), HS, ORAL
     Route: 048
     Dates: start: 20110525

REACTIONS (1)
  - BRAIN OPERATION [None]
